FAERS Safety Report 12139345 (Version 1)
Quarter: 2016Q1

REPORT INFORMATION
  Report Type: Spontaneous
  Country: FR (occurrence: FR)
  Receive Date: 20160303
  Receipt Date: 20160303
  Transmission Date: 20160526
  Serious: Yes (Hospitalization)
  Sender: FDA-Public Use
  Company Number: FR-ROCHE-1718607

PATIENT
  Age: 82 Year
  Sex: Female

DRUGS (14)
  1. AMIODARONE [Concomitant]
     Active Substance: AMIODARONE
  2. ELISOR [Concomitant]
     Active Substance: PRAVASTATIN SODIUM
  3. CORTANCYL [Concomitant]
     Active Substance: PREDNISONE
  4. ROCEPHINE [Suspect]
     Active Substance: CEFTRIAXONE SODIUM
     Indication: URINARY TRACT INFECTION
     Route: 065
     Dates: start: 201410, end: 201410
  5. VESICARE [Concomitant]
     Active Substance: SOLIFENACIN SUCCINATE
  6. IXPRIM [Concomitant]
     Active Substance: ACETAMINOPHEN\TRAMADOL HYDROCHLORIDE
  7. KENZEN [Concomitant]
     Active Substance: CANDESARTAN
  8. OMEPRAZOLE. [Concomitant]
     Active Substance: OMEPRAZOLE
  9. OFLOCET [Concomitant]
     Active Substance: OFLOXACIN
  10. PREVISCAN (FRANCE) [Concomitant]
     Active Substance: FLUINDIONE
  11. LASILIX [Suspect]
     Active Substance: FUROSEMIDE
     Indication: CARDIAC FAILURE
     Route: 065
     Dates: end: 201410
  12. TRANXENE T-TAB [Concomitant]
     Active Substance: CLORAZEPATE DIPOTASSIUM
  13. DOLIPRANE [Concomitant]
     Active Substance: ACETAMINOPHEN
  14. LEVOTHYROX [Concomitant]
     Active Substance: LEVOTHYROXINE

REACTIONS (1)
  - Acute kidney injury [Recovered/Resolved]

NARRATIVE: CASE EVENT DATE: 201410
